FAERS Safety Report 9385010 (Version 2)
Quarter: 2013Q4

REPORT INFORMATION
  Report Type: Spontaneous
  Country: US (occurrence: US)
  Receive Date: 20130705
  Receipt Date: 20131007
  Transmission Date: 20140711
  Serious: Yes (Other)
  Sender: FDA-Public Use
  Company Number: US-GLAXOSMITHKLINE-A1023859A

PATIENT
  Age: 45 Year
  Sex: Female

DRUGS (13)
  1. BENLYSTA [Suspect]
     Indication: SYSTEMIC LUPUS ERYTHEMATOSUS
     Dosage: 10MGK MONTHLY
     Route: 065
     Dates: start: 201105, end: 201208
  2. AMBIEN [Concomitant]
  3. XANAX [Concomitant]
  4. MARINOL [Concomitant]
  5. PREVACID [Concomitant]
  6. DIFLUCAN [Concomitant]
  7. PREDNISONE [Concomitant]
  8. CELEBREX [Concomitant]
  9. PLAQUENIL [Concomitant]
  10. ZOLOFT [Concomitant]
  11. CARAFATE [Concomitant]
  12. IMURAN [Concomitant]
  13. LIDODERM [Concomitant]

REACTIONS (2)
  - Urinary tract infection [Recovered/Resolved]
  - Infection [Unknown]
